FAERS Safety Report 7330769-8 (Version None)
Quarter: 2011Q1

REPORT INFORMATION
  Report Type: 
  Country: None (occurrence: None)
  Receive Date: 20110225
  Receipt Date: 20110225
  Transmission Date: 20110831
  Serious: No
  Sender: FDA-Public Use
  Company Number: None

PATIENT
  Sex: Female

DRUGS (1)
  1. REBIF [Suspect]
     Indication: MULTIPLE SCLEROSIS
     Dosage: 22MCG THREE TIMES/WEEK SUBCUTANEOUSLY
     Route: 058
     Dates: start: 20090609

REACTIONS (3)
  - GRIP STRENGTH DECREASED [None]
  - MOBILITY DECREASED [None]
  - ASTHENIA [None]
